FAERS Safety Report 6263887-6 (Version None)
Quarter: 2009Q3

REPORT INFORMATION
  Report Type: 
  Country: None (occurrence: None)
  Receive Date: 20090710
  Receipt Date: 20090609
  Transmission Date: 20100115
  Serious: No
  Sender: FDA-Public Use
  Company Number: US-BAYER-200923165NA

PATIENT
  Sex: Female

DRUGS (2)
  1. YAZ [Suspect]
     Indication: DRUG USE FOR UNKNOWN INDICATION
     Route: 048
     Dates: end: 20090101
  2. YAZ [Suspect]
     Route: 048
     Dates: start: 20090601

REACTIONS (2)
  - MUSCLE SPASMS [None]
  - NO ADVERSE EVENT [None]
